FAERS Safety Report 17138709 (Version 1)
Quarter: 2019Q4

REPORT INFORMATION
  Report Type: Spontaneous
  Country: US (occurrence: US)
  Receive Date: 20191211
  Receipt Date: 20191211
  Transmission Date: 20200122
  Serious: No
  Sender: FDA-Public Use
  Company Number: US-UCBSA-2016019524

PATIENT
  Age: 74 Year
  Sex: Female

DRUGS (3)
  1. VIMPAT [Suspect]
     Active Substance: LACOSAMIDE
     Indication: OFF LABEL USE
  2. VIMPAT [Suspect]
     Active Substance: LACOSAMIDE
     Indication: BLEPHAROSPASM
     Dosage: 50 MG, 2X/DAY (BID)
  3. BOTULINUM TOXIN [Concomitant]
     Active Substance: BOTULINUM TOXIN NOS
     Indication: BLEPHAROSPASM
     Dosage: BI-MONTHLY

REACTIONS (2)
  - Sensory disturbance [Unknown]
  - Off label use [Unknown]
